FAERS Safety Report 6258069-8 (Version None)
Quarter: 2009Q3

REPORT INFORMATION
  Report Type: 
  Country: None (occurrence: None)
  Receive Date: 20090707
  Receipt Date: 20070330
  Transmission Date: 20100115
  Serious: No
  Sender: FDA-Public Use
  Company Number: US-ASTRAZENECA-2006UW06095

PATIENT
  Sex: Female
  Weight: 88.5 kg

DRUGS (22)
  1. SEROQUEL [Suspect]
     Indication: SLEEP DISORDER
     Dosage: 25 - 350 MG
     Route: 048
     Dates: start: 20001001
  2. PRILOSEC [Concomitant]
  3. MELLARIL [Concomitant]
  4. ZITHROMAX [Concomitant]
  5. AMBIEN [Concomitant]
  6. SKELAXIN [Concomitant]
  7. PROMETHAZINE [Concomitant]
  8. LORAZEPAM [Concomitant]
  9. NABUMETONE [Concomitant]
  10. BIAXIN [Concomitant]
  11. GUAIFENEX [Concomitant]
  12. BENZTROPINE [Concomitant]
  13. GLUCOTROL XL [Concomitant]
  14. WELLBUTRIN SR [Concomitant]
  15. RISPERDAL [Concomitant]
  16. CHLORAL HYDRATE [Concomitant]
  17. DIAZEPAM [Concomitant]
  18. CLINDAMYCIN HCL [Concomitant]
  19. RANITIDINE [Concomitant]
  20. PREVACID [Concomitant]
  21. NITROFURANTOIN [Concomitant]
  22. COMBIVENT [Concomitant]

REACTIONS (1)
  - DIABETES MELLITUS [None]
